FAERS Safety Report 8769749 (Version 5)
Quarter: 2013Q2

REPORT INFORMATION
  Report Type: Report from Study
  Country: JP (occurrence: JP)
  Receive Date: 20120905
  Receipt Date: 20130524
  Transmission Date: 20140414
  Serious: Yes (Other)
  Sender: FDA-Public Use
  Company Number: JP-009507513-1208JPN010561

PATIENT
  Age: 57 Year
  Sex: Male
  Weight: 69 kg

DRUGS (9)
  1. PEGINTRON [Suspect]
     Indication: CHRONIC HEPATITIS C
     Dosage: 1.164 MICROGRAM PER KILOGRAM, QW
     Route: 058
     Dates: start: 20120507
  2. REBETOL [Suspect]
     Indication: CHRONIC HEPATITIS C
     Dosage: 800 MG, QD
     Route: 048
     Dates: start: 20120507, end: 20120520
  3. REBETOL [Suspect]
     Dosage: 400 MG, QD
     Route: 048
     Dates: start: 20120521, end: 20120902
  4. REBETOL [Suspect]
     Dosage: 600 MG, QD
     Route: 048
     Dates: start: 20120903
  5. TELAVIC [Suspect]
     Indication: CHRONIC HEPATITIS C
     Dosage: 1500 MG, QD
     Route: 048
     Dates: start: 20120507, end: 20120520
  6. TELAVIC [Suspect]
     Dosage: 1000 MG, QD
     Route: 048
     Dates: start: 20120521, end: 20120603
  7. TELAVIC [Suspect]
     Dosage: 1500 MG, QD
     Route: 048
     Dates: start: 20120604, end: 20120805
  8. VOLTAREN [Concomitant]
     Indication: PROPHYLAXIS
     Dosage: 25 MG/DAY, PRN
     Route: 048
     Dates: start: 20121002
  9. SELBEX [Concomitant]
     Indication: PROPHYLAXIS
     Dosage: 0.5 G/DAY, PRN
     Route: 048
     Dates: start: 20121002, end: 20121012

REACTIONS (1)
  - Platelet count decreased [Not Recovered/Not Resolved]
